FAERS Safety Report 24318923 (Version 2)
Quarter: 2024Q3

REPORT INFORMATION
  Report Type: Report from Study
  Country: CH (occurrence: DE)
  Receive Date: 20240913
  Receipt Date: 20240923
  Transmission Date: 20241017
  Serious: Yes (Other)
  Sender: OPKO HEALTH
  Company Number: CH-OPKO PHARMACEUTICALS, LLC.-2024OPK00236

PATIENT
  Age: 19 Year
  Sex: Male
  Weight: 60 kg

DRUGS (8)
  1. RAYALDEE [Suspect]
     Active Substance: CALCIFEDIOL
     Indication: Vitamin D deficiency
     Dosage: 30 MCG, QD
     Route: 048
     Dates: start: 20231219
  2. RAYALDEE [Suspect]
     Active Substance: CALCIFEDIOL
     Indication: Hyperparathyroidism secondary
  3. AZATHIOPRINE [Concomitant]
     Active Substance: AZATHIOPRINE
     Indication: Colitis ulcerative
     Dosage: 100 MG
     Route: 048
     Dates: start: 202101
  4. CANDESARTAN [Concomitant]
     Active Substance: CANDESARTAN
     Indication: Hypertension
     Dosage: 100 MG
     Route: 048
     Dates: start: 202101
  5. AMLODIPINE [Concomitant]
     Active Substance: AMLODIPINE BESYLATE
     Indication: Hypertension
     Dosage: 5 MG
     Route: 048
     Dates: start: 2021
  6. ATORVASTATIN [Concomitant]
     Active Substance: ATORVASTATIN
     Indication: Hypercholesterolaemia
     Dosage: 10 MG
     Route: 048
     Dates: start: 2023
  7. FERRO-SANOL DUODENAL [Concomitant]
     Active Substance: FERROUS GLYCINE SULFATE
     Indication: Iron deficiency
     Dosage: 100 MG
     Route: 048
  8. DAPAGLIFLOZIN [Concomitant]
     Active Substance: DAPAGLIFLOZIN
     Indication: Chronic kidney disease
     Dosage: 10 MG, QD
     Route: 048
     Dates: start: 20240501

REACTIONS (4)
  - Blood creatinine increased [None]
  - Urine albumin/creatinine ratio increased [Unknown]
  - Protein urine present [Unknown]
  - Urine protein/creatinine ratio increased [Unknown]

NARRATIVE: CASE EVENT DATE: 20240821
